FAERS Safety Report 9804173 (Version 1)
Quarter: 2014Q1

REPORT INFORMATION
  Report Type: Spontaneous
  Country: US (occurrence: None)
  Receive Date: 20140106
  Receipt Date: 20140106
  Transmission Date: 20141002
  Serious: Yes (Other)
  Sender: FDA-Public Use
  Company Number: FK201305608

PATIENT
  Age: 61 Year
  Sex: Male

DRUGS (4)
  1. DEXAMETHASONE INJECTION (MANUFACTURER UNKNOWN) (DEXAMETHASONE SODIUM PHOSPHATE) (DEMXAMETHASONE SODIUM PHOSPHATE) [Suspect]
     Indication: HODGKIN^S DISEASE
  2. CISPLATIN (MANUFACTURER UKNOWN) (CISPLATIN) (CISPLATIN) [Suspect]
     Indication: HODGKIN^S DISEASE
  3. CYTARABINE (MANUFACTURER UNKNOWN) (CYTARABINE) (CYTARABINE) [Suspect]
     Indication: HODGKIN^S DISEASE
  4. GEMCITABINE [Concomitant]

REACTIONS (3)
  - Pancytopenia [None]
  - Autonomic neuropathy [None]
  - Syncope [None]
